FAERS Safety Report 9803883 (Version 1)
Quarter: 2014Q1

REPORT INFORMATION
  Report Type: Spontaneous
  Country: GB (occurrence: GB)
  Receive Date: 20140108
  Receipt Date: 20140108
  Transmission Date: 20141002
  Serious: Yes (Hospitalization)
  Sender: FDA-Public Use
  Company Number: GB-DRREDDYS-GER/UKI/14/0036908

PATIENT
  Age: 81 Year
  Sex: Male

DRUGS (1)
  1. RIVASTIGMINE [Suspect]
     Indication: DEMENTIA ALZHEIMER^S TYPE
     Route: 048
     Dates: end: 20131209

REACTIONS (6)
  - Circulatory collapse [Recovered/Resolved with Sequelae]
  - Duodenitis haemorrhagic [Recovered/Resolved with Sequelae]
  - Gastritis [Recovered/Resolved with Sequelae]
  - Gastrointestinal haemorrhage [Recovered/Resolved with Sequelae]
  - Haematemesis [Recovered/Resolved with Sequelae]
  - Oesophagitis [Recovered/Resolved with Sequelae]
